FAERS Safety Report 21771907 (Version 1)
Quarter: 2022Q4

REPORT INFORMATION
  Report Type: Spontaneous
  Country: BR (occurrence: None)
  Receive Date: 20221223
  Receipt Date: 20221223
  Transmission Date: 20230112
  Serious: Yes (Other)
  Sender: FDA-Public Use
  Company Number: 2022A412884

PATIENT
  Age: 51 Year
  Sex: Female

DRUGS (1)
  1. LYNPARZA [Suspect]
     Active Substance: OLAPARIB
     Indication: Ovarian cancer
     Dosage: TWO TABLETS IN THE MORNING AND TWO TABLETS AT NIGHT
     Route: 048
     Dates: start: 202110

REACTIONS (3)
  - Metastases to peritoneum [Not Recovered/Not Resolved]
  - Neoplasm [Not Recovered/Not Resolved]
  - Gastrointestinal disorder [Not Recovered/Not Resolved]

NARRATIVE: CASE EVENT DATE: 20221201
